FAERS Safety Report 11796503 (Version 1)
Quarter: 2015Q4

REPORT INFORMATION
  Report Type: Spontaneous
  Country: GB (occurrence: GB)
  Receive Date: 20151203
  Receipt Date: 20151203
  Transmission Date: 20160305
  Serious: No
  Sender: FDA-Public Use
  Company Number: GB-GLENMARK PHARMACEUTICALS INC, USA.-2015GMK017039

PATIENT

DRUGS (2)
  1. ROPINIROLE. [Suspect]
     Active Substance: ROPINIROLE
     Indication: PRODUCT USED FOR UNKNOWN INDICATION
     Dosage: UNK
     Route: 048
  2. PRAMIPEXOLE. [Suspect]
     Active Substance: PRAMIPEXOLE
     Indication: PRODUCT USED FOR UNKNOWN INDICATION
     Dosage: UNK
     Route: 048

REACTIONS (8)
  - Vomiting [Unknown]
  - Paranoia [Unknown]
  - Drug ineffective [Unknown]
  - Oedema peripheral [Unknown]
  - Hallucination [Unknown]
  - Somnolence [Unknown]
  - Sleep disorder [Unknown]
  - Impulse-control disorder [Unknown]
